FAERS Safety Report 7190619-X (Version None)
Quarter: 2010Q4

REPORT INFORMATION
  Report Type: 
  Country: None (occurrence: None)
  Receive Date: 20101221
  Receipt Date: 20101221
  Transmission Date: 20110411
  Serious: Yes (Other)
  Sender: FDA-Public Use
  Company Number: None

PATIENT
  Age: 7 Year
  Sex: Female
  Weight: 20.4119 kg

DRUGS (1)
  1. SINGULAIR [Suspect]
     Dates: start: 20100330, end: 20101010

REACTIONS (3)
  - ABNORMAL BEHAVIOUR [None]
  - STARING [None]
  - UNRESPONSIVE TO STIMULI [None]
